FAERS Safety Report 26091072 (Version 1)
Quarter: 2025Q4

REPORT INFORMATION
  Report Type: Spontaneous
  Country: RU (occurrence: RU)
  Receive Date: 20251126
  Receipt Date: 20251126
  Transmission Date: 20260117
  Serious: Yes (Other)
  Sender: ALEXION PHARMACEUTICALS
  Company Number: RU-ASTRAZENECA-202511EAF019877RU

PATIENT

DRUGS (1)
  1. PULMICORT TURBUHALER [Suspect]
     Active Substance: BUDESONIDE
     Dosage: 125-250 MICROGRAM 2 TIMES A DAY
     Route: 065

REACTIONS (5)
  - Bronchial obstruction [Unknown]
  - Off label use [Unknown]
  - Bronchitis [Unknown]
  - Sinusitis [Unknown]
  - Laryngospasm [Unknown]
